FAERS Safety Report 17250789 (Version 1)
Quarter: 2020Q1

REPORT INFORMATION
  Report Type: Spontaneous
  Country: DE (occurrence: DE)
  Receive Date: 20200109
  Receipt Date: 20200109
  Transmission Date: 20200409
  Serious: Yes (Hospitalization)
  Sender: FDA-Public Use
  Company Number: DE-TEVA-2020-DE-1163367

PATIENT
  Age: 75 Year
  Sex: Male

DRUGS (4)
  1. PIRFENIDONE. [Interacting]
     Active Substance: PIRFENIDONE
     Dosage: THREE TIMES A DAY FOR WEEK TWO
     Route: 065
  2. ESOMEPRAZOLE. [Suspect]
     Active Substance: ESOMEPRAZOLE MAGNESIUM
     Indication: GASTROOESOPHAGEAL REFLUX DISEASE
     Route: 065
  3. PIRFENIDONE. [Interacting]
     Active Substance: PIRFENIDONE
     Indication: IDIOPATHIC PULMONARY FIBROSIS
     Dosage: THREE TIMES A DAY FOR FIRST WEEK
     Route: 065
  4. PIRFENIDONE. [Interacting]
     Active Substance: PIRFENIDONE
     Dosage: THREE TIMES A DAY FOR WEEK THREE AND ONWARDS
     Route: 065

REACTIONS (3)
  - Photosensitivity reaction [Recovered/Resolved]
  - Drug interaction [Unknown]
  - Liver injury [Unknown]
